FAERS Safety Report 4349131-5 (Version None)
Quarter: 2004Q2

REPORT INFORMATION
  Report Type: 
  Country: None (occurrence: None)
  Receive Date: 20040427
  Receipt Date: 20040427
  Transmission Date: 20050107
  Serious: Yes (Disabling)
  Sender: FDA-Public Use
  Company Number: None

PATIENT
  Age: 31 Year
  Sex: Female
  Weight: 48.5349 kg

DRUGS (3)
  1. PAXIL [Suspect]
     Indication: DEPRESSION
     Dates: start: 19960601, end: 19960730
  2. PAXIL [Suspect]
     Indication: MUSCLE SPASMS
     Dates: start: 19960601, end: 19960730
  3. PAXIL [Suspect]
     Indication: STRESS SYMPTOMS
     Dates: start: 19960601, end: 19960730

REACTIONS (7)
  - ANHEDONIA [None]
  - APATHY [None]
  - DISORIENTATION [None]
  - IMPAIRED WORK ABILITY [None]
  - LETHARGY [None]
  - NIGHTMARE [None]
  - SUICIDAL IDEATION [None]
